FAERS Safety Report 12968435 (Version 1)
Quarter: 2016Q4

REPORT INFORMATION
  Report Type: Spontaneous
  Country: US (occurrence: US)
  Receive Date: 20161121
  Receipt Date: 20161121
  Transmission Date: 20170207
  Serious: No
  Sender: FDA-Public Use
  Company Number: None

PATIENT
  Age: 52 Year
  Sex: Female

DRUGS (1)
  1. TETRABENAZINE 12.5 MG SUN [Suspect]
     Active Substance: TETRABENAZINE
     Indication: HUNTINGTON^S DISEASE
     Route: 048
     Dates: start: 20160516, end: 20161025

REACTIONS (4)
  - Drug effect decreased [None]
  - Anxiety [None]
  - Restlessness [None]
  - Listless [None]

NARRATIVE: CASE EVENT DATE: 20161025
